FAERS Safety Report 22524565 (Version 1)
Quarter: 2023Q2

REPORT INFORMATION
  Report Type: Spontaneous
  Country: FR (occurrence: FR)
  Receive Date: 20230606
  Receipt Date: 20230606
  Transmission Date: 20230721
  Serious: Yes (Other)
  Sender: FDA-Public Use
  Company Number: None

PATIENT

DRUGS (3)
  1. BELIMUMAB [Interacting]
     Active Substance: BELIMUMAB
     Indication: Systemic lupus erythematosus
     Dosage: 200 MG, WE
     Route: 058
     Dates: start: 202303
  2. AZATHIOPRINE SODIUM [Interacting]
     Active Substance: AZATHIOPRINE SODIUM
     Indication: Systemic lupus erythematosus
     Dosage: 100 MG, QD
     Route: 048
     Dates: start: 202207
  3. WARFARIN SODIUM [Interacting]
     Active Substance: WARFARIN SODIUM
     Indication: Endocarditis
     Dosage: 22 MG, QD
     Route: 048
     Dates: start: 20230120

REACTIONS (2)
  - International normalised ratio decreased [Not Recovered/Not Resolved]
  - Drug interaction [Unknown]
